FAERS Safety Report 7131203-3 (Version None)
Quarter: 2010Q4

REPORT INFORMATION
  Report Type: 
  Country: None (occurrence: None)
  Receive Date: 20101124
  Receipt Date: 20101124
  Transmission Date: 20110411
  Serious: Yes (Other)
  Sender: FDA-Public Use
  Company Number: None

PATIENT
  Sex: Female

DRUGS (1)
  1. CLINDAMYCIN [Suspect]
     Indication: BREAST INFECTION
     Dosage: 1 CAP EVERY 8 HOUR 10/15/2010 UNTIL IT WAS FINISH
     Dates: start: 20101015

REACTIONS (4)
  - DIARRHOEA [None]
  - ORAL CANDIDIASIS [None]
  - PYREXIA [None]
  - VOMITING [None]
